FAERS Safety Report 14181878 (Version 3)
Quarter: 2017Q4

REPORT INFORMATION
  Report Type: Report from Study
  Country: None (occurrence: PT)
  Receive Date: 20171113
  Receipt Date: 20171212
  Transmission Date: 20180321
  Serious: Yes (Other)
  Sender: FDA-Public Use
  Company Number: PT-ABBVIE-17K-130-2157694-00

PATIENT
  Sex: Male

DRUGS (6)
  1. HUMIRA [Suspect]
     Active Substance: ADALIMUMAB
     Indication: CROHN^S DISEASE
     Dosage: LOADING DOSE 1
     Route: 058
     Dates: start: 20161102, end: 20161102
  2. HUMIRA [Suspect]
     Active Substance: ADALIMUMAB
     Dosage: STARTED IN THE END OF APR 2017 OR IN THE BEGINNING OF MAY 2017
     Route: 058
     Dates: start: 2017
  3. MESALAZINE [Concomitant]
     Active Substance: MESALAMINE
     Indication: PRODUCT USED FOR UNKNOWN INDICATION
     Dosage: ON SOME MONTHS AGO
     Dates: start: 2017
  4. MESALAZINE [Concomitant]
     Active Substance: MESALAMINE
  5. HUMIRA [Suspect]
     Active Substance: ADALIMUMAB
     Route: 058
     Dates: start: 20161130, end: 2017
  6. HUMIRA [Suspect]
     Active Substance: ADALIMUMAB
     Dosage: LOADING DOSE 2
     Route: 058
     Dates: start: 20161116, end: 20161116

REACTIONS (4)
  - Haematochezia [Recovering/Resolving]
  - Dry skin [Recovering/Resolving]
  - Hepatic fibrosis [Not Recovered/Not Resolved]
  - Drug effect decreased [Unknown]

NARRATIVE: CASE EVENT DATE: 2017
